FAERS Safety Report 23279688 (Version 2)
Quarter: 2024Q4

REPORT INFORMATION
  Report Type: Spontaneous
  Country: US (occurrence: US)
  Receive Date: 20231210
  Receipt Date: 20241212
  Transmission Date: 20250114
  Serious: Yes (Death, Life-Threatening, Other)
  Sender: SANDOZ
  Company Number: US-SANDOZ-SDZ2023US065275

PATIENT
  Age: 12 Year
  Sex: Male

DRUGS (1)
  1. METHOTREXATE [Suspect]
     Active Substance: METHOTREXATE
     Indication: B-cell type acute leukaemia
     Dosage: UNK, HIGH DOSE
     Route: 065

REACTIONS (5)
  - Acute kidney injury [Fatal]
  - Acute hepatic failure [Fatal]
  - Septic shock [Fatal]
  - Drug level increased [Fatal]
  - Transaminases increased [Unknown]
